FAERS Safety Report 6588035-4 (Version None)
Quarter: 2010Q1

REPORT INFORMATION
  Report Type: 
  Country: None (occurrence: None)
  Receive Date: 20100217
  Receipt Date: 20100217
  Transmission Date: 20100710
  Serious: Yes (Other)
  Sender: FDA-Public Use
  Company Number: None

PATIENT
  Age: 73 Year
  Sex: Female
  Weight: 53.978 kg

DRUGS (6)
  1. OMEPRAZOLE [Suspect]
     Indication: ENDOSCOPY
     Dosage: 20 MG 1 DAILY ORAL
     Route: 048
     Dates: start: 20100121, end: 20100122
  2. OMEPRAZOLE [Suspect]
     Indication: ERUCTATION
     Dosage: 20 MG 1 DAILY ORAL
     Route: 048
     Dates: start: 20100121, end: 20100122
  3. OMEPRAZOLE [Suspect]
     Indication: GASTROOESOPHAGEAL REFLUX DISEASE
     Dosage: 20 MG 1 DAILY ORAL
     Route: 048
     Dates: start: 20100121, end: 20100122
  4. OMEPRAZOLE [Suspect]
     Indication: ENDOSCOPY
     Dosage: 20 MG 1 DAILY ORAL
     Route: 048
     Dates: start: 20100123
  5. OMEPRAZOLE [Suspect]
     Indication: ERUCTATION
     Dosage: 20 MG 1 DAILY ORAL
     Route: 048
     Dates: start: 20100123
  6. OMEPRAZOLE [Suspect]
     Indication: GASTROOESOPHAGEAL REFLUX DISEASE
     Dosage: 20 MG 1 DAILY ORAL
     Route: 048
     Dates: start: 20100123

REACTIONS (5)
  - DYSGEUSIA [None]
  - PRODUCT COLOUR ISSUE [None]
  - PRODUCT QUALITY ISSUE [None]
  - SWOLLEN TONGUE [None]
  - TONGUE BLISTERING [None]
